FAERS Safety Report 18252128 (Version 1)
Quarter: 2020Q3

REPORT INFORMATION
  Report Type: Spontaneous
  Country: US (occurrence: US)
  Receive Date: 20200910
  Receipt Date: 20200910
  Transmission Date: 20201103
  Serious: No
  Sender: FDA-Public Use
  Company Number: US-FARMAPROD-202003-0341

PATIENT
  Age: 80 Year
  Sex: Female

DRUGS (2)
  1. REFRESH OPTIVE ADVANCED [Concomitant]
     Active Substance: CARBOXYMETHYLCELLULOSE SODIUM\GLYCERIN\POLYSORBATE 80
  2. OXERVATE [Suspect]
     Active Substance: CENEGERMIN-BKBJ
     Indication: NEUROTROPHIC KERATOPATHY
     Route: 047
     Dates: start: 20200310

REACTIONS (10)
  - Eye pain [Recovered/Resolved]
  - Product use issue [Unknown]
  - Rhinorrhoea [Unknown]
  - Vision blurred [Not Recovered/Not Resolved]
  - Accidental overdose [Unknown]
  - Eyelids pruritus [Unknown]
  - Product administration error [Unknown]
  - Product dose omission issue [Unknown]
  - Eye swelling [Unknown]
  - Eye pruritus [Unknown]

NARRATIVE: CASE EVENT DATE: 20200310
